FAERS Safety Report 12706193 (Version 2)
Quarter: 2016Q3

REPORT INFORMATION
  Report Type: Spontaneous
  Country: US (occurrence: US)
  Receive Date: 20160901
  Receipt Date: 20160901
  Transmission Date: 20161109
  Serious: No
  Sender: FDA-Public Use
  Company Number: US-JAZZ-2016-US-007767

PATIENT
  Sex: Female

DRUGS (18)
  1. XYREM [Suspect]
     Active Substance: SODIUM OXYBATE
     Indication: NARCOLEPSY
     Dosage: 2.25 G, BID
     Route: 048
     Dates: start: 201602, end: 201602
  2. XYREM [Suspect]
     Active Substance: SODIUM OXYBATE
     Dosage: DOSE ADJUSTMENTS
     Route: 048
     Dates: start: 2016, end: 2016
  3. MAGNESIUM OXIDE. [Concomitant]
     Active Substance: MAGNESIUM OXIDE
  4. METRONIDAZOLE. [Concomitant]
     Active Substance: METRONIDAZOLE
  5. NASONEX [Concomitant]
     Active Substance: MOMETASONE FUROATE
  6. XYREM [Suspect]
     Active Substance: SODIUM OXYBATE
     Dosage: 2.5 G, SECOND DOSE
     Route: 048
     Dates: start: 2016
  7. ASPIRIN E.C [Concomitant]
     Active Substance: ASPIRIN
  8. XYREM [Suspect]
     Active Substance: SODIUM OXYBATE
     Dosage: 2.75 G, FIRST DOSE
     Route: 048
     Dates: start: 2016
  9. ZOFRAN [Concomitant]
     Active Substance: ONDANSETRON HYDROCHLORIDE
  10. ESTRACE [Concomitant]
     Active Substance: ESTRADIOL
  11. VITAMIN D3 [Concomitant]
     Active Substance: CHOLECALCIFEROL
  12. COQ 10 [Concomitant]
     Active Substance: UBIDECARENONE
  13. RITALIN [Concomitant]
     Active Substance: METHYLPHENIDATE HYDROCHLORIDE
  14. RITALIN LA [Concomitant]
     Active Substance: METHYLPHENIDATE HYDROCHLORIDE
  15. MACROBID [Concomitant]
     Active Substance: NITROFURANTOIN\NITROFURANTOIN MONOHYDRATE
  16. ZANTAC [Concomitant]
     Active Substance: RANITIDINE HYDROCHLORIDE
  17. PROPRANOLOL [Concomitant]
     Active Substance: PROPRANOLOL\PROPRANOLOL HYDROCHLORIDE
  18. PROVIGIL [Concomitant]
     Active Substance: MODAFINIL

REACTIONS (1)
  - Incorrect dose administered [Unknown]
